FAERS Safety Report 11368930 (Version 1)
Quarter: 2015Q3

REPORT INFORMATION
  Report Type: Spontaneous
  Country: GB (occurrence: GB)
  Receive Date: 20150812
  Receipt Date: 20150812
  Transmission Date: 20151125
  Serious: Yes (Hospitalization)
  Sender: FDA-Public Use
  Company Number: GB-AUROBINDO-AUR-APL-2015-07037

PATIENT
  Age: 58 Year
  Sex: Female
  Weight: 60 kg

DRUGS (2)
  1. PAROXETINE 20MG [Suspect]
     Active Substance: PAROXETINE\PAROXETINE HYDROCHLORIDE
     Indication: DEPRESSION
     Dosage: 20 MG, ONCE A DAY
     Route: 048
     Dates: start: 20150716, end: 20150721
  2. ZOPICLONE [Concomitant]
     Active Substance: ZOPICLONE
     Indication: PRODUCT USED FOR UNKNOWN INDICATION
     Route: 065

REACTIONS (8)
  - Inappropriate antidiuretic hormone secretion [Unknown]
  - Generalised tonic-clonic seizure [Unknown]
  - Confusional state [Recovering/Resolving]
  - Fall [Unknown]
  - Balance disorder [Recovering/Resolving]
  - Intracranial pressure increased [Recovering/Resolving]
  - Hyponatraemic seizure [Recovering/Resolving]
  - Lung disorder [Unknown]

NARRATIVE: CASE EVENT DATE: 20150721
